FAERS Safety Report 14261809 (Version 2)
Quarter: 2017Q4

REPORT INFORMATION
  Report Type: Report from Study
  Country: None (occurrence: CH)
  Receive Date: 20171208
  Receipt Date: 20171215
  Transmission Date: 20180321
  Serious: Yes (Hospitalization, Other)
  Sender: FDA-Public Use
  Company Number: CH-ABBVIE-17P-151-2036606-00

PATIENT
  Age: 77 Year
  Sex: Female

DRUGS (15)
  1. SEROQUEL [Concomitant]
     Active Substance: QUETIAPINE FUMARATE
     Indication: PRODUCT USED FOR UNKNOWN INDICATION
     Dates: start: 20160823
  2. BENERVA [Concomitant]
     Active Substance: THIAMINE
     Indication: PRODUCT USED FOR UNKNOWN INDICATION
  3. FOLIC ACID. [Concomitant]
     Active Substance: FOLIC ACID
     Indication: PRODUCT USED FOR UNKNOWN INDICATION
  4. DUODOPA [Suspect]
     Active Substance: CARBIDOPA\LEVODOPA
     Dosage: MORNING DOSE 3.0ML,?CONTINUOUS RATE 1.4ML/H?EXTRA DOSE 0.8?16H THERAPY
     Route: 050
     Dates: start: 201707
  5. LATANOPROST. [Concomitant]
     Active Substance: LATANOPROST
     Indication: PRODUCT USED FOR UNKNOWN INDICATION
     Route: 047
  6. MOVICOL [Concomitant]
     Active Substance: POLYETHYLENE GLYCOL 3350\POTASSIUM CHLORIDE\SODIUM BICARBONATE\SODIUM CHLORIDE
     Indication: PRODUCT USED FOR UNKNOWN INDICATION
  7. TIMOPTIC [Concomitant]
     Active Substance: TIMOLOL MALEATE
     Indication: PRODUCT USED FOR UNKNOWN INDICATION
     Dosage: 1 DROP IN THE LEFT AND RIGHT EYE
  8. DUODOPA [Suspect]
     Active Substance: CARBIDOPA\LEVODOPA
     Dosage: MORNING DOSE 3.0ML,?CONTINUOUS RATE 2.0ML/H?EXTRA DOSE 0.8?16H THERAPY
     Route: 050
     Dates: end: 201707
  9. DUODOPA [Suspect]
     Active Substance: CARBIDOPA\LEVODOPA
     Dosage: MORNING DOSE 3.2ML,?CONTINUOUS RATE 1.3ML/H?EXTRA DOSE 0.5
     Route: 050
     Dates: start: 2017
  10. VITAMIN D3 [Concomitant]
     Active Substance: CHOLECALCIFEROL
     Indication: PRODUCT USED FOR UNKNOWN INDICATION
  11. DUODOPA [Suspect]
     Active Substance: CARBIDOPA\LEVODOPA
     Dosage: MORNING DOSE 3.2ML,?CONTINUOUS RATE 1.7ML/H?EXTRA DOSE 0.5?16H THERAPY
     Route: 050
     Dates: start: 20160908
  12. BEPANTHEN [Concomitant]
     Active Substance: DEXPANTHENOL
     Indication: PRODUCT USED FOR UNKNOWN INDICATION
     Dosage: 1 DROP IN BOTH EYES
  13. DUODOPA [Suspect]
     Active Substance: CARBIDOPA\LEVODOPA
     Indication: PARKINSON^S DISEASE
     Dosage: MORNING DOSE 3.2ML,?CONTINUOUS RATE 1.7ML/H?EXTRA DOSE 0.5
     Route: 050
     Dates: start: 20160824, end: 20160908
  14. SYMFONA [Concomitant]
     Active Substance: GINKGO
     Indication: PRODUCT USED FOR UNKNOWN INDICATION
  15. RESOURCE SENIOR ACTIVE [Concomitant]
     Indication: NUTRITIONAL SUPPLEMENTATION
     Dosage: PER 200ML:?3.4MG IRON?20 G PROTEIN?500 IU VITAMINE D3?480 MG CALCIUM?2.2 UG VITAMINE B12

REACTIONS (25)
  - Apathy [Unknown]
  - Akinesia [Unknown]
  - Hospitalisation [Unknown]
  - Hypernatraemia [Unknown]
  - Senile dementia [Unknown]
  - Device dislocation [Recovered/Resolved]
  - Hyperkinesia [Unknown]
  - On and off phenomenon [Unknown]
  - Suicidal ideation [Unknown]
  - Speech disorder [Unknown]
  - Nutritional condition abnormal [Unknown]
  - Agitation [Unknown]
  - Cognitive disorder [Unknown]
  - Hypertension [Unknown]
  - Disturbance in attention [Unknown]
  - Lethargy [Unknown]
  - Restlessness [Unknown]
  - Delusion [Unknown]
  - Hallucination, auditory [Unknown]
  - Locked-in syndrome [Unknown]
  - Dyskinesia [Unknown]
  - Somnolence [Unknown]
  - Hallucination [Unknown]
  - Hyperkinesia [Recovered/Resolved]
  - Dehydration [Unknown]

NARRATIVE: CASE EVENT DATE: 201610
